FAERS Safety Report 24113685 (Version 1)
Quarter: 2024Q3

REPORT INFORMATION
  Report Type: Spontaneous
  Country: JP (occurrence: JP)
  Receive Date: 20240720
  Receipt Date: 20240720
  Transmission Date: 20241017
  Serious: Yes (Hospitalization, Other)
  Sender: SANDOZ
  Company Number: JP-002147023-NVSJ2022JP101166

PATIENT
  Age: 101 Year
  Sex: Female

DRUGS (4)
  1. VALACYCLOVIR HYDROCHLORIDE [Suspect]
     Active Substance: VALACYCLOVIR HYDROCHLORIDE
     Dosage: 1000 MG, QD
     Route: 065
  2. VALACYCLOVIR HYDROCHLORIDE [Suspect]
     Active Substance: VALACYCLOVIR HYDROCHLORIDE
     Indication: Herpes zoster
     Dosage: 2000 MG, QD
     Route: 048
  3. AZELNIDIPINE [Concomitant]
     Active Substance: AZELNIDIPINE
     Indication: Hypertension
     Dosage: UNK
     Route: 065
  4. OLMESARTAN [Concomitant]
     Active Substance: OLMESARTAN
     Indication: Hypertension
     Dosage: UNK
     Route: 065

REACTIONS (2)
  - Drug reaction with eosinophilia and systemic symptoms [Recovered/Resolved]
  - Intentional product misuse [Unknown]
